FAERS Safety Report 22379049 (Version 3)
Quarter: 2023Q2

REPORT INFORMATION
  Report Type: Report from Study
  Country: US (occurrence: US)
  Receive Date: 20230529
  Receipt Date: 20230606
  Transmission Date: 20230721
  Serious: No
  Sender: FDA-Public Use
  Company Number: US-002147023-NVSC2023US121673

PATIENT
  Sex: Male

DRUGS (1)
  1. OMNITROPE [Suspect]
     Active Substance: SOMATROPIN
     Indication: Hypopituitarism
     Dosage: UNK, QD, (OTHER DOSAGE 12IU)
     Route: 058
     Dates: start: 20230517

REACTIONS (3)
  - Fatigue [Unknown]
  - Contusion [Unknown]
  - Product storage error [Unknown]
